FAERS Safety Report 13694869 (Version 1)
Quarter: 2017Q2

REPORT INFORMATION
  Report Type: Spontaneous
  Country: US (occurrence: US)
  Receive Date: 20170627
  Receipt Date: 20170627
  Transmission Date: 20170830
  Serious: Yes (Hospitalization, Other)
  Sender: FDA-Public Use
  Company Number: PHEH2017US019457

PATIENT
  Sex: Female

DRUGS (1)
  1. LAMISIL [Suspect]
     Active Substance: TERBINAFINE HYDROCHLORIDE
     Indication: ONYCHOMYCOSIS
     Dosage: 01 DF, QD
     Route: 048
     Dates: start: 201309

REACTIONS (16)
  - Acute kidney injury [Unknown]
  - Nausea [Not Recovered/Not Resolved]
  - Anhedonia [Unknown]
  - Disability [Unknown]
  - Urinary tract infection [Unknown]
  - Hepatic failure [Unknown]
  - Viral infection [Not Recovered/Not Resolved]
  - Anaemia [Unknown]
  - Drug reaction with eosinophilia and systemic symptoms [Unknown]
  - Chromaturia [Not Recovered/Not Resolved]
  - Injury [Unknown]
  - Pain [Not Recovered/Not Resolved]
  - Deformity [Unknown]
  - Chest pain [Not Recovered/Not Resolved]
  - Headache [Not Recovered/Not Resolved]
  - Pyrexia [Not Recovered/Not Resolved]

NARRATIVE: CASE EVENT DATE: 20131127
